FAERS Safety Report 24277810 (Version 1)
Quarter: 2024Q3

REPORT INFORMATION
  Report Type: Spontaneous
  Country: FR (occurrence: FR)
  Receive Date: 20240903
  Receipt Date: 20240903
  Transmission Date: 20241017
  Serious: Yes (Other)
  Sender: FRESENIUS KABI
  Company Number: None

PATIENT
  Age: 38 Year
  Sex: Male

DRUGS (2)
  1. LIDOCAINE [Suspect]
     Active Substance: LIDOCAINE
     Indication: Dental local anaesthesia
     Dosage: ROUTE OF ADMINISTRATION: DENTAL (CUT) USE
     Dates: start: 20240716, end: 20240716
  2. EPINEPHRINE [Concomitant]
     Active Substance: EPINEPHRINE
     Indication: Dental local anaesthesia
     Route: 004
     Dates: start: 20240716, end: 20240716

REACTIONS (3)
  - Loss of consciousness [Recovered/Resolved]
  - Seizure [Recovered/Resolved]
  - Asthenia [Recovered/Resolved]

NARRATIVE: CASE EVENT DATE: 20240716
